FAERS Safety Report 7476598-6 (Version None)
Quarter: 2011Q2

REPORT INFORMATION
  Report Type: 
  Country: None (occurrence: None)
  Receive Date: 20110510
  Receipt Date: 20110510
  Transmission Date: 20111010
  Serious: Yes (Life-Threatening)
  Sender: FDA-Public Use
  Company Number: None

PATIENT
  Age: 64 Year
  Sex: Female
  Weight: 65.318 kg

DRUGS (1)
  1. LYRICA [Suspect]
     Indication: BACK PAIN
     Dosage: 1 3 X DAY
     Dates: start: 20101009, end: 20101011

REACTIONS (4)
  - RENAL FAILURE [None]
  - WHITE BLOOD CELL COUNT ABNORMAL [None]
  - WEIGHT INCREASED [None]
  - JOINT SWELLING [None]
